FAERS Safety Report 9637807 (Version 3)
Quarter: 2014Q1

REPORT INFORMATION
  Report Type: Spontaneous
  Country: US (occurrence: US)
  Receive Date: 20131022
  Receipt Date: 20140217
  Transmission Date: 20141002
  Serious: Yes (Other)
  Sender: FDA-Public Use
  Company Number: US-UCBSA-100881

PATIENT
  Age: 35 Year
  Sex: Female
  Weight: 54.9 kg

DRUGS (8)
  1. KEPPRA XR [Suspect]
     Indication: CONVULSION
     Dosage: 2 TABLETS AT NIGHT AND ONE TABLET IN MORNING
     Route: 048
  2. KEPPRA XR [Suspect]
     Indication: CONVULSION
     Dosage: 500 4/DAILY,750 MG IN THE MORNING AND 1000MG IN THE EVENING
     Dates: start: 2013
  3. PLAQUINOL [Concomitant]
     Indication: SYSTEMIC LUPUS ERYTHEMATOSUS
     Dosage: DOSE 200 MG, 1 AND HALF TAB DAILY
     Route: 048
  4. CELLCEPT [Concomitant]
     Indication: SYSTEMIC LUPUS ERYTHEMATOSUS
     Route: 048
  5. PREDNISONE [Concomitant]
     Indication: SYSTEMIC LUPUS ERYTHEMATOSUS
     Route: 048
  6. VITAMIN D3 [Concomitant]
     Indication: NUTRITIONAL SUPPLEMENTATION
     Route: 048
  7. BIOTEN [Concomitant]
     Indication: ALOPECIA
     Route: 048
  8. CACLIUM+VITAMIN D [Concomitant]
     Indication: NUTRITIONAL SUPPLEMENTATION
     Route: 048

REACTIONS (4)
  - Tuberous sclerosis [Not Recovered/Not Resolved]
  - Systemic lupus erythematosus [Not Recovered/Not Resolved]
  - Convulsion [Recovered/Resolved]
  - Inappropriate schedule of drug administration [Unknown]
